FAERS Safety Report 8892271 (Version 1)
Quarter: 2012Q4

REPORT INFORMATION
  Report Type: 
  Country: US (occurrence: US)
  Receive Date: 20121107
  Receipt Date: 20121107
  Transmission Date: 20130627
  Serious: Yes (Death, Hospitalization)
  Sender: FDA-Public Use
  Company Number: US-GLAXOSMITHKLINE-A0775468A

PATIENT
  Age: 47 Year
  Sex: Male
  Weight: 60.9 kg

DRUGS (10)
  1. AVANDIA [Suspect]
     Indication: DIABETES MELLITUS
     Dosage: 8MG Per day
     Route: 048
     Dates: start: 200112, end: 200803
  2. AVAPRO [Concomitant]
  3. COREG [Concomitant]
  4. NORVASC [Concomitant]
  5. GLIPIZIDE [Concomitant]
  6. BICARBONATE [Concomitant]
  7. CARDURA [Concomitant]
  8. ALLOPURINOL [Concomitant]
  9. MICRONASE [Concomitant]
  10. VYTORIN [Concomitant]

REACTIONS (7)
  - Death [Fatal]
  - Myocardial infarction [Unknown]
  - Ischaemic cardiomyopathy [Unknown]
  - Myocardial ischaemia [Unknown]
  - Cardiac failure congestive [Unknown]
  - Blood cholesterol increased [Unknown]
  - Vascular graft [Unknown]
